FAERS Safety Report 16377970 (Version 1)
Quarter: 2019Q2

REPORT INFORMATION
  Report Type: Spontaneous
  Country: US (occurrence: US)
  Receive Date: 20190425
  Receipt Date: 20190425
  Transmission Date: 20190711
  Serious: No
  Sender: FDA-Public Use
  Company Number: None

PATIENT
  Age: 80 Year
  Sex: Male

DRUGS (1)
  1. SUTENT [Suspect]
     Active Substance: SUNITINIB MALATE
     Indication: NEOPLASM MALIGNANT
     Dosage: ?          OTHER FREQUENCY:DAILY FOR 2 WEEKS;?
     Route: 048
     Dates: start: 20190225

REACTIONS (2)
  - Skin weeping [None]
  - Hyperkeratosis [None]

NARRATIVE: CASE EVENT DATE: 20190301
